FAERS Safety Report 18855491 (Version 2)
Quarter: 2021Q2

REPORT INFORMATION
  Report Type: Spontaneous
  Country: BE (occurrence: BE)
  Receive Date: 20210205
  Receipt Date: 20210416
  Transmission Date: 20210717
  Serious: Yes (Other)
  Sender: FDA-Public Use
  Company Number: BE-PFIZER INC-2021040074

PATIENT
  Age: 52 Year
  Sex: Female

DRUGS (2)
  1. LYRICA [Suspect]
     Active Substance: PREGABALIN
     Dosage: 3 DF, DAILY  (ONE IN THE MORNING, TWO IN THE EVENING)
     Dates: start: 202010
  2. COMIRNATY [Suspect]
     Active Substance: TOZINAMERAN
     Indication: COVID-19 IMMUNISATION
     Dosage: SINGLE DOSE
     Dates: start: 20210118, end: 20210118

REACTIONS (3)
  - Fall [Unknown]
  - Memory impairment [Unknown]
  - Dizziness [Recovering/Resolving]

NARRATIVE: CASE EVENT DATE: 20201228
